FAERS Safety Report 15881668 (Version 2)
Quarter: 2019Q2

REPORT INFORMATION
  Report Type: Spontaneous
  Country: PT (occurrence: PT)
  Receive Date: 20190128
  Receipt Date: 20190612
  Transmission Date: 20190711
  Serious: Yes (Hospitalization, Other)
  Sender: FDA-Public Use
  Company Number: PHHY2019PT014903

PATIENT
  Age: 69 Year
  Sex: Female

DRUGS (1)
  1. IMATINIB. [Suspect]
     Active Substance: IMATINIB MESYLATE
     Indication: ACUTE LYMPHOCYTIC LEUKAEMIA
     Dosage: 600 MG, QD
     Route: 065

REACTIONS (9)
  - Dysphagia [Recovering/Resolving]
  - Nausea [Recovering/Resolving]
  - Abdominal distension [Recovering/Resolving]
  - Pain [Recovering/Resolving]
  - Constipation [Recovering/Resolving]
  - Pneumatosis intestinalis [Recovering/Resolving]
  - Vomiting [Recovering/Resolving]
  - Odynophagia [Recovering/Resolving]
  - Emphysema [Recovering/Resolving]
